FAERS Safety Report 13004753 (Version 2)
Quarter: 2016Q4

REPORT INFORMATION
  Report Type: Spontaneous
  Country: US (occurrence: US)
  Receive Date: 20161207
  Receipt Date: 20161209
  Transmission Date: 20170207
  Serious: No
  Sender: FDA-Public Use
  Company Number: US-HORIZON-RAV-0264-2016

PATIENT
  Age: 15 Year
  Sex: Male

DRUGS (6)
  1. CYCLINEX-2 [Concomitant]
     Dosage: 4 TIMES A DAY
  2. PROTEIN [Concomitant]
     Active Substance: PROTEIN
  3. ARGININE [Concomitant]
     Active Substance: ARGININE
     Indication: ORNITHINE TRANSCARBAMOYLASE DEFICIENCY
     Dosage: 4 TIMES A DAY
  4. SODIUM BENZOATE [Concomitant]
     Active Substance: SODIUM BENZOATE
     Dosage: 4 TIMES A DAY
  5. RAVICTI [Suspect]
     Active Substance: GLYCEROL PHENYLBUTYRATE
     Indication: ORNITHINE TRANSCARBAMOYLASE DEFICIENCY
     Dosage: 3.5 ML TID, 10.5 ML TOTAL/DAY
     Dates: start: 20151028
  6. PRO-PHREE [Concomitant]
     Dosage: 4 TIMES A DAY

REACTIONS (2)
  - Decreased appetite [Unknown]
  - Hypophagia [Unknown]
